FAERS Safety Report 6020214-7 (Version None)
Quarter: 2008Q4

REPORT INFORMATION
  Report Type: 
  Country: None (occurrence: None)
  Receive Date: 20081223
  Receipt Date: 20081223
  Transmission Date: 20090506
  Serious: Yes (Other)
  Sender: FDA-Public Use
  Company Number: None

PATIENT
  Sex: Male
  Weight: 70.3075 kg

DRUGS (2)
  1. CIALIS [Suspect]
     Indication: ERECTILE DYSFUNCTION
     Dosage: ONE TABLET EVERY THIRD DAY PO
     Route: 048
     Dates: start: 20081119, end: 20081216
  2. CIALIS [Suspect]
     Indication: PROSTATECTOMY
     Dosage: ONE TABLET EVERY THIRD DAY PO
     Route: 048
     Dates: start: 20081119, end: 20081216

REACTIONS (5)
  - ASTHMA [None]
  - DEAFNESS UNILATERAL [None]
  - LOWER RESPIRATORY TRACT INFECTION [None]
  - MULTIPLE ALLERGIES [None]
  - NASAL CONGESTION [None]
